FAERS Safety Report 7527510-2 (Version None)
Quarter: 2011Q2

REPORT INFORMATION
  Report Type: 
  Country: None (occurrence: None)
  Receive Date: 20110607
  Receipt Date: 20110526
  Transmission Date: 20111010
  Serious: Yes (Other)
  Sender: FDA-Public Use
  Company Number: CA-JNJFOC-20110512054

PATIENT
  Sex: Male
  Weight: 45.36 kg

DRUGS (2)
  1. CONCERTA [Suspect]
     Route: 048
     Dates: start: 20090101
  2. CONCERTA [Suspect]
     Indication: ATTENTION DEFICIT/HYPERACTIVITY DISORDER
     Route: 048
     Dates: start: 20110101

REACTIONS (5)
  - SUICIDAL IDEATION [None]
  - MOOD SWINGS [None]
  - DEPRESSION [None]
  - SOCIAL AVOIDANT BEHAVIOUR [None]
  - INSOMNIA [None]
